FAERS Safety Report 7374711-2 (Version None)
Quarter: 2011Q1

REPORT INFORMATION
  Report Type: 
  Country: None (occurrence: None)
  Receive Date: 20110325
  Receipt Date: 20101001
  Transmission Date: 20110831
  Serious: No
  Sender: FDA-Public Use
  Company Number: US-MYLANLABS-2010S1015677

PATIENT
  Age: 70 Year
  Sex: Male
  Weight: 83.92 kg

DRUGS (16)
  1. LISINOPRIL [Concomitant]
     Route: 048
  2. HYDROCHLOROTHIAZIDE [Concomitant]
     Route: 048
  3. COUMADIN [Concomitant]
  4. GLIPIZIDE [Concomitant]
     Route: 048
  5. MYSOLINE [Concomitant]
     Indication: DYSKINESIA
     Route: 048
  6. AVODART [Concomitant]
     Route: 048
  7. NORCO [Concomitant]
     Indication: BREAKTHROUGH PAIN
     Dosage: 10MG/325MG
     Route: 048
  8. TOPROL-XL [Concomitant]
     Route: 048
  9. MIRAPEX [Concomitant]
     Indication: RESTLESS LEGS SYNDROME
     Route: 048
  10. FLOMAX [Concomitant]
     Route: 048
  11. ALPHAGAN P [Concomitant]
     Indication: GLAUCOMA
     Route: 047
  12. PAXIL [Concomitant]
     Route: 048
  13. FENTANYL-100 [Suspect]
     Indication: BACK PAIN
     Dosage: CHANGED Q72H
     Route: 062
     Dates: start: 20060101
  14. NORVASC [Concomitant]
     Route: 048
  15. FENTANYL-100 [Suspect]
     Dosage: CHANGED Q72H
     Route: 062
     Dates: start: 20060101
  16. SIMVASTATIN [Concomitant]
     Route: 048

REACTIONS (3)
  - BACK PAIN [None]
  - DRUG EFFECT DECREASED [None]
  - DRUG WITHDRAWAL SYNDROME [None]
